FAERS Safety Report 12994300 (Version 1)
Quarter: 2016Q4

REPORT INFORMATION
  Report Type: Spontaneous
  Country: US (occurrence: US)
  Receive Date: 20161202
  Receipt Date: 20161202
  Transmission Date: 20170207
  Serious: Yes (Hospitalization, Other)
  Sender: FDA-Public Use
  Company Number: US-TEVA-717187USA

PATIENT
  Age: 55 Year
  Sex: Female

DRUGS (1)
  1. GABITRIL [Suspect]
     Active Substance: TIAGABINE HYDROCHLORIDE
     Route: 065

REACTIONS (1)
  - Surgery [Unknown]

NARRATIVE: CASE EVENT DATE: 20160801
